FAERS Safety Report 12142446 (Version 1)
Quarter: 2016Q1

REPORT INFORMATION
  Report Type: Spontaneous
  Country: DK (occurrence: DK)
  Receive Date: 20160303
  Receipt Date: 20160303
  Transmission Date: 20160526
  Serious: Yes (Hospitalization, Other)
  Sender: FDA-Public Use
  Company Number: PHHY2016DK025686

PATIENT
  Age: 41 Year
  Sex: Female

DRUGS (3)
  1. HYDROCORTISONE. [Suspect]
     Active Substance: HYDROCORTISONE
     Indication: DERMATITIS ATOPIC
     Dosage: UNK
     Route: 061
     Dates: start: 2008
  2. HYDROCORTISONE BUTYRATE. [Suspect]
     Active Substance: HYDROCORTISONE BUTYRATE
     Indication: DERMATITIS ATOPIC
     Route: 061
  3. MOMETASONE [Suspect]
     Active Substance: MOMETASONE
     Indication: DERMATITIS ATOPIC
     Route: 061

REACTIONS (4)
  - Drug ineffective [Unknown]
  - Gastrointestinal infection [Unknown]
  - Adrenal suppression [Unknown]
  - Adrenocortical insufficiency acute [Unknown]
